FAERS Safety Report 7653067-1 (Version None)
Quarter: 2011Q3

REPORT INFORMATION
  Report Type: 
  Country: None (occurrence: None)
  Receive Date: 20110803
  Receipt Date: 20110801
  Transmission Date: 20111222
  Serious: Yes (Hospitalization)
  Sender: FDA-Public Use
  Company Number: IT-ROCHE-793505

PATIENT
  Sex: Male

DRUGS (5)
  1. LEVOFOLENE [Concomitant]
     Route: 042
     Dates: start: 20100615, end: 20110331
  2. ALOXI [Concomitant]
     Route: 042
     Dates: start: 20100615, end: 20110331
  3. DESAMETASONE [Concomitant]
     Route: 042
     Dates: start: 20100615, end: 20110331
  4. AVASTIN [Suspect]
     Dosage: FREQUENCY:CYCLIC
     Route: 042
     Dates: start: 20100615, end: 20110125
  5. FLUOROURACIL [Concomitant]
     Route: 042
     Dates: start: 20100615, end: 20110331

REACTIONS (1)
  - ATRIAL FLUTTER [None]
